FAERS Safety Report 5927044-2 (Version None)
Quarter: 2008Q4

REPORT INFORMATION
  Report Type: 
  Country: None (occurrence: None)
  Receive Date: 20081022
  Receipt Date: 20081015
  Transmission Date: 20090506
  Serious: Yes (Hospitalization, Other)
  Sender: FDA-Public Use
  Company Number: PHEH2008US08677

PATIENT
  Sex: Female
  Weight: 65 kg

DRUGS (13)
  1. EXJADE [Suspect]
     Indication: SERUM FERRITIN INCREASED
     Dosage: 1500 MG, QD
     Route: 048
     Dates: start: 20070821, end: 20080128
  2. EXJADE [Suspect]
     Indication: MYELODYSPLASTIC SYNDROME
  3. NEXIUM [Concomitant]
     Indication: GASTROOESOPHAGEAL REFLUX DISEASE
     Dosage: 40 MG, QD
     Route: 048
  4. COSOPT [Concomitant]
     Dosage: 1 DROP BID
  5. PROPRANOLOL [Concomitant]
     Dosage: 10 MG, BID
     Route: 048
  6. GLUCOSAMINE SULFATE [Concomitant]
     Dosage: 500 MG 2 AS DIRECTED
     Route: 048
  7. PIROXICAM [Concomitant]
     Dosage: 200 MG, QD
     Route: 048
  8. PREDNISOLONE ACETATE [Concomitant]
     Dosage: 1 DROP OU AS DIRECTED
  9. ALPHAGAN [Concomitant]
  10. XALATAN [Concomitant]
     Dosage: 1 DROP Q HS
  11. VITAMIN D [Concomitant]
     Route: 048
  12. OCUVITE                            /01053801/ [Concomitant]
  13. VIGAMOX [Concomitant]

REACTIONS (8)
  - ABDOMINAL PAIN [None]
  - DUODENAL PERFORATION [None]
  - EPIGASTRIC DISCOMFORT [None]
  - FATIGUE [None]
  - GASTRECTOMY [None]
  - GASTRO-JEJUNOSTOMY [None]
  - HAEMATOMA [None]
  - POSTOPERATIVE WOUND COMPLICATION [None]
